FAERS Safety Report 21780924 (Version 1)
Quarter: 2022Q4

REPORT INFORMATION
  Report Type: Spontaneous
  Country: US (occurrence: US)
  Receive Date: 20221227
  Receipt Date: 20221227
  Transmission Date: 20230113
  Serious: No
  Sender: FDA-Public Use
  Company Number: US-TOLMAR, INC.-22US038066

PATIENT
  Age: 77 Year
  Sex: Female

DRUGS (2)
  1. CALCIPOTRIENE [Suspect]
     Active Substance: CALCIPOTRIENE
     Indication: Product used for unknown indication
     Dosage: 0.005 % PERCENT, QD
     Dates: start: 202212
  2. CALCIPOTRIENE [Suspect]
     Active Substance: CALCIPOTRIENE
     Dosage: 0.005 % PERCENT, QD
     Dates: start: 2017

REACTIONS (2)
  - Incorrect dose administered by product [Unknown]
  - Product packaging quantity issue [Unknown]

NARRATIVE: CASE EVENT DATE: 20221201
